FAERS Safety Report 6139018-X (Version None)
Quarter: 2009Q1

REPORT INFORMATION
  Report Type: 
  Country: None (occurrence: None)
  Receive Date: 20090327
  Receipt Date: 20090312
  Transmission Date: 20090719
  Serious: Yes (Life-Threatening, Other)
  Sender: FDA-Public Use
  Company Number: 2009S1004501

PATIENT
  Age: 3 Year
  Sex: Female

DRUGS (3)
  1. CARBAMAZAPINE (CARBAMAZEPINE) [Suspect]
     Indication: DRUG USE FOR UNKNOWN INDICATION
     Dosage: TRANSPLACENTAL
     Route: 064
  2. MIRTAZAPINE [Suspect]
     Indication: DRUG USE FOR UNKNOWN INDICATION
     Dosage: TRANSPLACENTAL
     Route: 064
  3. OXAZEPAM [Suspect]
     Indication: DRUG USE FOR UNKNOWN INDICATION
     Dosage: TRANSPLACENTAL
     Route: 064

REACTIONS (3)
  - CONGENITAL HYDROCEPHALUS [None]
  - MATERNAL DRUGS AFFECTING FOETUS [None]
  - MEDULLOBLASTOMA [None]
